FAERS Safety Report 8511536-6 (Version None)
Quarter: 2012Q3

REPORT INFORMATION
  Report Type: 
  Country: None (occurrence: None)
  Receive Date: 20120710
  Receipt Date: 20120710
  Transmission Date: 20120928
  Serious: No
  Sender: FDA-Public Use
  Company Number: None

PATIENT

DRUGS (1)
  1. PAROXETINE [Suspect]
     Dates: start: 20120326, end: 20120413

REACTIONS (7)
  - LOSS OF CONSCIOUSNESS [None]
  - AGGRESSION [None]
  - ANGER [None]
  - HALLUCINATION [None]
  - ALCOHOL USE [None]
  - SUICIDAL IDEATION [None]
  - PHYSICAL ASSAULT [None]
